FAERS Safety Report 9654120 (Version 1)
Quarter: 2013Q4

REPORT INFORMATION
  Report Type: Spontaneous
  Country: US (occurrence: US)
  Receive Date: 20131029
  Receipt Date: 20131029
  Transmission Date: 20140711
  Serious: No
  Sender: FDA-Public Use
  Company Number: US-009507513-1310USA006483

PATIENT
  Age: 74 Year
  Sex: Male

DRUGS (8)
  1. DULERA [Suspect]
     Dosage: 2 PUFFS, BID
     Route: 055
     Dates: start: 2011
  2. ASTEPRO [Concomitant]
  3. VENTOLIN (ALBUTEROL SULFATE) [Concomitant]
  4. VERAPAMIL [Concomitant]
  5. LEVOXYL [Concomitant]
  6. LIPITOR [Concomitant]
  7. ZANTAC [Concomitant]
  8. WARFARIN [Concomitant]

REACTIONS (3)
  - Chest discomfort [Unknown]
  - Product physical issue [Unknown]
  - Drug dose omission [Unknown]
